FAERS Safety Report 5447291-6 (Version None)
Quarter: 2007Q3

REPORT INFORMATION
  Report Type: 
  Country: None (occurrence: None)
  Receive Date: 20070910
  Receipt Date: 20070830
  Transmission Date: 20080115
  Serious: Yes (Other)
  Sender: FDA-Public Use
  Company Number: US-AVENTIS-200611116US

PATIENT
  Sex: Female
  Weight: 95.45 kg

DRUGS (17)
  1. PENLAC [Suspect]
     Dosage: DOSE: UNK
     Route: 061
     Dates: start: 20050821, end: 20060201
  2. LIPITOR [Suspect]
     Dosage: DOSE: UNK
     Dates: start: 20040101, end: 20060101
  3. LIPITOR [Suspect]
     Dosage: DOSE: UNK
     Dates: end: 20040101
  4. PREVACID [Concomitant]
     Dosage: DOSE: UNK
  5. VICODIN [Concomitant]
     Dosage: DOSE: UNK
  6. AMBIEN [Concomitant]
     Dosage: DOSE: UNK
  7. VITAMIN CAP [Concomitant]
     Dosage: DOSE: UNK
  8. SKELAXIN [Concomitant]
     Dosage: DOSE: UNKNOWN
  9. CLIMARA [Concomitant]
     Dosage: DOSE: 0.0375 MG/24
  10. BIAXIN XL [Concomitant]
     Dates: start: 20050726, end: 20050801
  11. BIAXIN XL [Concomitant]
     Dates: start: 20050920, end: 20050901
  12. AMI-TEX LA [Concomitant]
     Dosage: DOSE: 600-30
     Dates: start: 20051109
  13. AZMACORT [Concomitant]
     Dates: start: 20051202
  14. ZYRTEC [Concomitant]
     Dates: start: 20051207
  15. TAMIFLU [Concomitant]
     Dosage: DOSE: UNK
     Dates: start: 20051222
  16. RANITIDINE [Concomitant]
     Dates: start: 20051228
  17. ALLEGRA-D 12 HOUR [Concomitant]
     Dosage: DOSE: 120-60
     Dates: start: 20051228

REACTIONS (14)
  - ANOREXIA [None]
  - ANTINUCLEAR ANTIBODY INCREASED [None]
  - ASTHENIA [None]
  - BLOOD CREATINE PHOSPHOKINASE INCREASED [None]
  - CARPAL TUNNEL SYNDROME [None]
  - DERMATOMYOSITIS [None]
  - FIBROMYALGIA [None]
  - HYPOAESTHESIA [None]
  - LARYNGITIS [None]
  - LIVER FUNCTION TEST ABNORMAL [None]
  - RASH GENERALISED [None]
  - TENDONITIS [None]
  - VOCAL CORD POLYP [None]
  - WEIGHT DECREASED [None]
